FAERS Safety Report 5274728-8 (Version None)
Quarter: 2007Q1

REPORT INFORMATION
  Report Type: 
  Country: None (occurrence: None)
  Receive Date: 20070320
  Receipt Date: 20070306
  Transmission Date: 20070707
  Serious: Yes (Death, Hospitalization)
  Sender: FDA-Public Use
  Company Number: PAR_1393_2007

PATIENT
  Age: 83 Year
  Sex: Female
  Weight: 60.9 kg

DRUGS (5)
  1. MEGACE ES [Suspect]
     Indication: APPETITE DISORDER
     Dosage: 625 MG QDAY PO
     Route: 048
     Dates: start: 20070101, end: 20070221
  2. MEGACE ES [Suspect]
     Indication: ORAL INTAKE REDUCED
     Dosage: 625 MG QDAY PO
     Route: 048
     Dates: start: 20070101, end: 20070221
  3. PROGESTERONE [Concomitant]
  4. IRON SUPPLEMENT [Concomitant]
  5. ATENOLOL [Concomitant]

REACTIONS (6)
  - ABDOMINAL PAIN [None]
  - ALANINE AMINOTRANSFERASE INCREASED [None]
  - ASPARTATE AMINOTRANSFERASE INCREASED [None]
  - BLOOD CREATININE INCREASED [None]
  - CONDITION AGGRAVATED [None]
  - WHITE BLOOD CELL COUNT INCREASED [None]
